FAERS Safety Report 8094660 (Version 4)
Quarter: 2013Q1

REPORT INFORMATION
  Report Type: Report from Study
  Country: PL (occurrence: PL)
  Receive Date: 20110817
  Receipt Date: 20130308
  Transmission Date: 20140127
  Serious: Yes (Hospitalization)
  Sender: FDA-Public Use
  Company Number: PL-UCBSA-037555

PATIENT
  Age: 33 Year
  Sex: Male
  Weight: 70 kg

DRUGS (13)
  1. LACOSAMIDE [Suspect]
     Indication: EPILEPSY
     Dosage: STARTED ON  30-AUG-2010 (UNKNOWN DOSE), VISIT  6  DOSE WAS 600MG/DAY, DOSE DECREASED 200 MG/WEEK
     Route: 048
     Dates: end: 20110722
  2. TOPIRAMATE [Concomitant]
     Indication: EPILEPSY
     Dates: start: 20110411, end: 20110417
  3. TOPIRAMATE [Concomitant]
     Indication: EPILEPSY
     Dates: start: 20110418, end: 20110424
  4. TOPIRAMATE [Concomitant]
     Indication: EPILEPSY
     Dosage: 25 MG AND 50 MG
     Dates: start: 20110425, end: 20110501
  5. TOPIRAMATE [Concomitant]
     Indication: EPILEPSY
     Dates: start: 20110502, end: 20110508
  6. TOPIRAMATE [Concomitant]
     Indication: EPILEPSY
     Dosage: 50 MG AND 75 MG
     Dates: start: 20110509, end: 20110515
  7. TOPIRAMATE [Concomitant]
     Indication: EPILEPSY
     Dates: start: 20110516, end: 20110522
  8. TOPIRAMATE [Concomitant]
     Indication: EPILEPSY
     Dosage: 75 MG AND 100 MG
     Dates: start: 20110523, end: 20110529
  9. TOPIRAMATE [Concomitant]
     Indication: EPILEPSY
     Dates: start: 20110530, end: 20110707
  10. TOPIRAMATE [Concomitant]
     Indication: EPILEPSY
     Dates: start: 20110708, end: 2011
  11. TOPIRAMATE [Concomitant]
     Indication: EPILEPSY
     Dosage: DAILY DOSE: 100 MG
     Dates: start: 2011, end: 2011
  12. TOPIRAMATE [Concomitant]
     Indication: EPILEPSY
     Dosage: 150-0-150
     Dates: start: 2011, end: 2011
  13. TOPIRAMATE [Concomitant]
     Indication: EPILEPSY
     Dates: start: 2011

REACTIONS (1)
  - Acute psychosis [Recovered/Resolved]
